FAERS Safety Report 19724384 (Version 1)
Quarter: 2021Q3

REPORT INFORMATION
  Report Type: Spontaneous
  Country: IT (occurrence: IT)
  Receive Date: 20210819
  Receipt Date: 20210819
  Transmission Date: 20211014
  Serious: Yes (Other)
  Sender: FDA-Public Use
  Company Number: IT-MYLANLABS-2021M1052930

PATIENT
  Age: 61 Year
  Sex: Male
  Weight: 67 kg

DRUGS (1)
  1. EZETIMIBE MYLAN [Suspect]
     Active Substance: EZETIMIBE
     Indication: PRODUCT USED FOR UNKNOWN INDICATION
     Dosage: UNK

REACTIONS (3)
  - Insomnia [Unknown]
  - Macroglossia [Unknown]
  - Myalgia [Unknown]

NARRATIVE: CASE EVENT DATE: 20210304
